FAERS Safety Report 25009710 (Version 1)
Quarter: 2025Q1

REPORT INFORMATION
  Report Type: Spontaneous
  Country: DE (occurrence: DE)
  Receive Date: 20250225
  Receipt Date: 20250225
  Transmission Date: 20250409
  Serious: Yes (Other)
  Sender: SANOFI AVENTIS
  Company Number: None

PATIENT
  Age: 24 Year
  Sex: Female
  Weight: 52 kg

DRUGS (3)
  1. CERDELGA [Suspect]
     Active Substance: ELIGLUSTAT
     Indication: Gaucher^s disease
     Dosage: 1 DF, BID
     Route: 048
     Dates: start: 20241110
  2. LISDEXAMFETAMINE DIMESYLATE [Concomitant]
     Active Substance: LISDEXAMFETAMINE DIMESYLATE
     Indication: Attention deficit hyperactivity disorder
     Dosage: 1 DF, QD
     Route: 048
     Dates: start: 2023
  3. Drovelis [Concomitant]
     Indication: Oral contraception
     Dosage: 1 DF, QD
     Route: 048
     Dates: start: 2021

REACTIONS (8)
  - Erysipelas [Not Recovered/Not Resolved]
  - Pain in extremity [Not Recovered/Not Resolved]
  - Decreased immune responsiveness [Not Recovered/Not Resolved]
  - Fungal skin infection [Unknown]
  - Influenza like illness [Unknown]
  - Sick leave [Recovered/Resolved]
  - Job dissatisfaction [Unknown]
  - Mental disorder [Unknown]

NARRATIVE: CASE EVENT DATE: 20250109
